FAERS Safety Report 9027195 (Version 1)
Quarter: 2013Q1

REPORT INFORMATION
  Report Type: Spontaneous
  Country: CL (occurrence: CL)
  Receive Date: 20130123
  Receipt Date: 20130123
  Transmission Date: 20140127
  Serious: Yes (Other)
  Sender: FDA-Public Use
  Company Number: CL-009507513-1301CHL007232

PATIENT
  Age: 37 Year
  Sex: Female

DRUGS (1)
  1. IMPLANON [Suspect]
     Indication: CONTRACEPTION
     Dosage: 1 DF, TRIENNIAL, 25-70 MCG DAILY
     Route: 059

REACTIONS (4)
  - Gastrectomy [Unknown]
  - Menstruation irregular [Unknown]
  - Endometrial hypertrophy [Unknown]
  - Weight decreased [Unknown]
